FAERS Safety Report 12964778 (Version 3)
Quarter: 2016Q4

REPORT INFORMATION
  Report Type: Spontaneous
  Country: BR (occurrence: BR)
  Receive Date: 20161122
  Receipt Date: 20161130
  Transmission Date: 20170207
  Serious: Yes (Hospitalization)
  Sender: FDA-Public Use
  Company Number: BR-PFIZER INC-2015411392

PATIENT
  Sex: Female

DRUGS (1)
  1. FRONTAL [Suspect]
     Active Substance: ALPRAZOLAM
     Dosage: 0.5 MG, UNK
     Route: 048
     Dates: end: 2015

REACTIONS (8)
  - Panic disorder [Unknown]
  - Generalised anxiety disorder [Not Recovered/Not Resolved]
  - Fear [Unknown]
  - Feeling abnormal [Unknown]
  - Disease recurrence [Unknown]
  - Drug ineffective [Unknown]
  - Crying [Unknown]
  - Memory impairment [Unknown]

NARRATIVE: CASE EVENT DATE: 20151118
